FAERS Safety Report 5825038-9 (Version None)
Quarter: 2008Q3

REPORT INFORMATION
  Report Type: 
  Country: None (occurrence: None)
  Receive Date: 20080724
  Receipt Date: 20080724
  Transmission Date: 20090109
  Serious: Yes (Hospitalization, Other)
  Sender: FDA-Public Use
  Company Number: None

PATIENT
  Sex: Male
  Weight: 92.9874 kg

DRUGS (1)
  1. AMPHETAMINE SALT COMBO 10MG SANDOZ [Suspect]
     Indication: ATTENTION DEFICIT/HYPERACTIVITY DISORDER
     Dosage: 1 PO TID
     Route: 048
     Dates: start: 20080313, end: 20080710

REACTIONS (1)
  - CEREBROVASCULAR ACCIDENT [None]
